FAERS Safety Report 17042379 (Version 1)
Quarter: 2019Q4

REPORT INFORMATION
  Report Type: Spontaneous
  Country: SE (occurrence: SE)
  Receive Date: 20191118
  Receipt Date: 20191118
  Transmission Date: 20200122
  Serious: Yes (Hospitalization, Other)
  Sender: FDA-Public Use
  Company Number: SE-SA-2019SA315235

PATIENT
  Age: 17 Year
  Sex: Female

DRUGS (2)
  1. PROMETHAZINE HYDROCHLORIDE. [Suspect]
     Active Substance: PROMETHAZINE HYDROCHLORIDE
     Dosage: UNK (ABOUT 30 PCS.)
     Route: 048
     Dates: start: 20180225, end: 20180225
  2. STILNOCT [Suspect]
     Active Substance: ZOLPIDEM TARTRATE
     Dosage: UNK (UNCLEAR AMOUNT)
     Dates: start: 20180225, end: 20180225

REACTIONS (5)
  - Depressed level of consciousness [Unknown]
  - Intentional self-injury [Unknown]
  - Anxiety [Unknown]
  - Muscle twitching [Unknown]
  - Intentional overdose [Unknown]

NARRATIVE: CASE EVENT DATE: 20180225
